FAERS Safety Report 17763476 (Version 1)
Quarter: 2020Q2

REPORT INFORMATION
  Report Type: Spontaneous
  Country: GB (occurrence: GB)
  Receive Date: 20200509
  Receipt Date: 20200509
  Transmission Date: 20200714
  Serious: Yes (Other)
  Sender: FDA-Public Use
  Company Number: GB-TEVA-2020-GB-1232103

PATIENT
  Age: 79 Year
  Sex: Female

DRUGS (7)
  1. DIAZEPAM. [Concomitant]
     Active Substance: DIAZEPAM
     Dosage: 6 MG, 2 IN MORNING, 1 AT NIGHT
  2. SOTALOL. [Concomitant]
     Active Substance: SOTALOL
     Dosage: 160 MG
  3. DIGOXIN. [Concomitant]
     Active Substance: DIGOXIN
  4. TRIMETHOPRIM. [Suspect]
     Active Substance: TRIMETHOPRIM
     Indication: URINARY TRACT INFECTION
     Dosage: 1 DOSAGE FORMS
     Route: 048
     Dates: start: 20200327, end: 20200328
  5. WARFARIN SODIUM. [Concomitant]
     Active Substance: WARFARIN SODIUM
     Dosage: 2 MILLIGRAM DAILY; AT TEA TIME
  6. ROSUVASTATIN. [Concomitant]
     Active Substance: ROSUVASTATIN
     Dosage: 5 MILLIGRAM DAILY;  AT NIGHT
  7. PREGABALIN. [Concomitant]
     Active Substance: PREGABALIN
     Dosage: 100 MILLIGRAM DAILY; ONE AT NIGHT ONE MORNING

REACTIONS (5)
  - Papule [Not Recovered/Not Resolved]
  - Erythema [Not Recovered/Not Resolved]
  - Hypersensitivity [Not Recovered/Not Resolved]
  - Pain of skin [Not Recovered/Not Resolved]
  - Pruritus [Not Recovered/Not Resolved]

NARRATIVE: CASE EVENT DATE: 20200327
